FAERS Safety Report 11088304 (Version 1)
Quarter: 2015Q2

REPORT INFORMATION
  Report Type: Spontaneous
  Country: JP (occurrence: None)
  Receive Date: 20150430
  Receipt Date: 20150430
  Transmission Date: 20150821
  Serious: Yes (Other)
  Sender: FDA-Public Use
  Company Number: 2015SGN00642

PATIENT
  Age: 81 Year
  Sex: Female
  Weight: 57.3 kg

DRUGS (1)
  1. ADCETRIS [Suspect]
     Active Substance: BRENTUXIMAB VEDOTIN
     Indication: HODGKIN^S DISEASE
     Dosage: 1.8 UNK, UNK, IV DRIP
     Route: 041
     Dates: start: 20140508, end: 20140528

REACTIONS (1)
  - Lymphopenia [None]

NARRATIVE: CASE EVENT DATE: 20140508
